FAERS Safety Report 14736336 (Version 4)
Quarter: 2018Q4

REPORT INFORMATION
  Report Type: Report from Study
  Country: FR (occurrence: FR)
  Receive Date: 20180409
  Receipt Date: 20181005
  Transmission Date: 20190204
  Serious: Yes (Death, Other)
  Sender: FDA-Public Use
  Company Number: FR-JAZZ-2018-FR-005428

PATIENT

DRUGS (23)
  1. DESFERAL [Concomitant]
     Active Substance: DEFEROXAMINE MESYLATE
     Indication: IRON OVERLOAD
     Dosage: 1.7 G, QD
     Route: 042
     Dates: start: 20140413, end: 20140630
  2. URSOFALK [Concomitant]
     Active Substance: URSODIOL
     Indication: PROPHYLAXIS
     Dosage: 570 MG, QD
     Route: 048
     Dates: start: 20140418, end: 20140917
  3. ONDANSETRON [Concomitant]
     Active Substance: ONDANSETRON
     Indication: NAUSEA
     Dosage: 16 MG, QD
     Route: 042
     Dates: start: 20140524, end: 20140630
  4. DEFITELIO [Suspect]
     Active Substance: DEFIBROTIDE SODIUM
     Indication: PROPHYLAXIS
     Dosage: 25 MG/KG, QD
     Dates: start: 20140803, end: 20141216
  5. LAROXYL [Concomitant]
     Active Substance: AMITRIPTYLINE HYDROCHLORIDE
     Indication: DEPRESSION
     Dosage: 40 MG, QD
     Route: 042
     Dates: start: 20140531, end: 20140607
  6. FUROSEMIDE. [Concomitant]
     Active Substance: FUROSEMIDE
     Indication: OEDEMA
     Dosage: UNK
     Dates: start: 20150516, end: 20150523
  7. RIVOTRIL [Concomitant]
     Active Substance: CLONAZEPAM
     Indication: PAIN
     Dosage: 1.2 MG, QD
     Route: 042
     Dates: start: 20140531, end: 20140608
  8. SOMATOSTATIN [Concomitant]
     Active Substance: SOMATOSTATIN
     Indication: PROPHYLAXIS
     Dosage: 100 ?G, QD
     Route: 042
     Dates: start: 20140530, end: 201410
  9. LIDOCAINE. [Concomitant]
     Active Substance: LIDOCAINE
     Indication: PAIN
     Dosage: 600 MG, QD
     Route: 042
     Dates: start: 20141212, end: 20141217
  10. MORPHINE [Concomitant]
     Active Substance: MORPHINE
     Indication: PAIN
     Dosage: 32 MG, QD
     Route: 042
     Dates: start: 20140610, end: 20140715
  11. NICARDIPINE HYDROCHLORIDE. [Concomitant]
     Active Substance: NICARDIPINE HYDROCHLORIDE
     Indication: HYPERTENSION
     Dosage: 10 MG, QD
     Route: 042
     Dates: start: 20140605, end: 20140621
  12. CICLOSPORIN [Concomitant]
     Active Substance: CYCLOSPORINE
     Indication: PROPHYLAXIS
     Dosage: 64 MG, QD
     Route: 042
     Dates: start: 20140419, end: 20140705
  13. ACICLOVIR [Concomitant]
     Active Substance: ACYCLOVIR
     Indication: PROPHYLAXIS
     Dosage: 1.3 G, QD
     Route: 042
     Dates: start: 20140518, end: 20150523
  14. BACTRIM [Concomitant]
     Active Substance: SULFAMETHOXAZOLE\TRIMETHOPRIM
     Indication: INFECTION
     Dosage: 800 MG, QD
     Route: 042
     Dates: start: 20140820, end: 201501
  15. OXYNORM [Concomitant]
     Active Substance: OXYCODONE HYDROCHLORIDE
     Indication: PAIN
     Dosage: 32 MG, QD
     Route: 042
     Dates: start: 20140805, end: 20140829
  16. DEFITELIO [Suspect]
     Active Substance: DEFIBROTIDE SODIUM
     Indication: THROMBOTIC THROMBOCYTOPENIC PURPURA
     Dosage: 25 MG/KG, QD
     Route: 042
     Dates: start: 20140616, end: 20140707
  17. PHENOXYMETHYLPENICILLIN [Concomitant]
     Active Substance: PENICILLIN V
     Indication: INFECTION
     Dosage: 2 MIU
     Route: 048
     Dates: start: 20140526, end: 20140615
  18. SUCRALFATE. [Concomitant]
     Active Substance: SUCRALFATE
     Indication: SECRETION DISCHARGE
     Dosage: UNKNOWN DOSE
     Route: 048
     Dates: start: 20140803, end: 20140913
  19. DEFITELIO [Suspect]
     Active Substance: DEFIBROTIDE SODIUM
     Indication: VENOOCCLUSIVE DISEASE
     Dosage: 25 MG/KG, QD
     Route: 042
     Dates: start: 20140418, end: 20140525
  20. METHYLPREDNISOLONE. [Concomitant]
     Active Substance: METHYLPREDNISOLONE
     Indication: PROPHYLAXIS
     Dosage: 120 MG, QD
     Route: 042
     Dates: start: 20140510, end: 20140714
  21. METHYLPREDNISOLONE. [Concomitant]
     Active Substance: METHYLPREDNISOLONE
     Dosage: 60 MG, QD
     Route: 042
     Dates: start: 20141204, end: 20150523
  22. DESFERAL [Concomitant]
     Active Substance: DEFEROXAMINE MESYLATE
     Dosage: 1.9 G, QD
     Route: 042
     Dates: start: 20141021, end: 20141217
  23. TIENAM [Concomitant]
     Active Substance: CILASTATIN SODIUM\IMIPENEM
     Indication: INFECTION
     Dosage: 2 G, QD
     Route: 042
     Dates: start: 20140804, end: 20140912

REACTIONS (9)
  - Multiple organ dysfunction syndrome [Fatal]
  - Thrombotic thrombocytopenic purpura [Not Recovered/Not Resolved]
  - Cardiac failure [Recovered/Resolved]
  - Gastrointestinal haemorrhage [Not Recovered/Not Resolved]
  - Condition aggravated [Not Recovered/Not Resolved]
  - Embolism [Not Recovered/Not Resolved]
  - Acute pulmonary oedema [Recovered/Resolved]
  - Haematuria [Recovered/Resolved]
  - Respiratory failure [Recovered/Resolved]

NARRATIVE: CASE EVENT DATE: 20140602
